FAERS Safety Report 6527550-6 (Version None)
Quarter: 2010Q1

REPORT INFORMATION
  Report Type: 
  Country: None (occurrence: None)
  Receive Date: 20100104
  Receipt Date: 20100104
  Transmission Date: 20100710
  Serious: Yes (Hospitalization)
  Sender: FDA-Public Use
  Company Number: None

PATIENT
  Sex: Female
  Weight: 40 kg

DRUGS (6)
  1. ALLOPURINOL [Suspect]
     Indication: GOUT
     Dosage: ORAL
     Route: 048
     Dates: start: 20091206, end: 20091212
  2. GLYBURIDE [Concomitant]
  3. BUMEX [Concomitant]
  4. DARVOCET-N 100 [Concomitant]
  5. VITAMIN D [Concomitant]
  6. LOVAZA [Concomitant]

REACTIONS (7)
  - ASTHENIA [None]
  - PAIN [None]
  - PRURITUS [None]
  - RASH GENERALISED [None]
  - SCRATCH [None]
  - SKIN EXFOLIATION [None]
  - THIRST [None]
